FAERS Safety Report 20611863 (Version 1)
Quarter: 2022Q1

REPORT INFORMATION
  Report Type: Spontaneous
  Country: DE (occurrence: DE)
  Receive Date: 20220318
  Receipt Date: 20220318
  Transmission Date: 20220423
  Serious: Yes (Death, Life-Threatening, Hospitalization, Other)
  Sender: FDA-Public Use
  Company Number: DE-EMA-DD-20180406-hjainp-112714

PATIENT
  Age: 65 Year
  Sex: Male
  Weight: 58 kg

DRUGS (16)
  1. METOPROLOL [Interacting]
     Active Substance: METOPROLOL
     Indication: Hypertension
     Dates: start: 201409, end: 201506
  2. SIMVASTATIN [Interacting]
     Active Substance: SIMVASTATIN
     Indication: Atrial fibrillation
     Dosage: 40 MG, QD
     Route: 048
     Dates: end: 20150416
  3. PANTOPRAZOLE [Interacting]
     Active Substance: PANTOPRAZOLE
     Indication: Gastrooesophageal reflux disease
     Dosage: 1 X 20-40MG OVER YEARS
     Route: 048
     Dates: start: 20150327, end: 20150416
  4. TRUVADA [Interacting]
     Active Substance: EMTRICITABINE\TENOFOVIR DISOPROXIL FUMARATE
     Indication: HIV infection
     Dates: start: 20140919, end: 20150414
  5. TIVICAY [Interacting]
     Active Substance: DOLUTEGRAVIR SODIUM
     Indication: HIV infection
     Route: 048
     Dates: start: 20140919, end: 20150414
  6. ASPIRIN [Interacting]
     Active Substance: ASPIRIN
     Indication: Atrial fibrillation
     Dosage: 100 MG, QD
  7. OMEPRAZOLE [Concomitant]
     Active Substance: OMEPRAZOLE
     Indication: Prophylaxis
     Dates: start: 201409, end: 201506
  8. OMEPRAZOLE [Concomitant]
     Active Substance: OMEPRAZOLE
     Indication: Gastritis
  9. CEFTRIAXONE [Concomitant]
     Active Substance: CEFTRIAXONE
     Indication: Product used for unknown indication
     Dates: start: 20150405
  10. SULFAMETHOXAZOLE\TRIMETHOPRIM [Concomitant]
     Active Substance: SULFAMETHOXAZOLE\TRIMETHOPRIM
     Indication: Prophylaxis
     Dates: start: 201409, end: 201504
  11. MEROPENEM [Concomitant]
     Active Substance: MEROPENEM
     Indication: Product used for unknown indication
     Dates: start: 20150525
  12. CANDIO HERMAL Ointment [Concomitant]
     Indication: Oesophageal candidiasis
     Dates: start: 201505, end: 201506
  13. CANDIO HERMAL Ointment [Concomitant]
     Dosage: UNK
     Dates: start: 201409, end: 201411
  14. PIPERACILLIN SODIUM\TAZOBACTAM SODIUM [Concomitant]
     Active Substance: PIPERACILLIN SODIUM\TAZOBACTAM SODIUM
     Indication: Product used for unknown indication
  15. KALETRA [Concomitant]
     Active Substance: LOPINAVIR\RITONAVIR
     Indication: HIV infection
     Dates: start: 20150508
  16. FLUCONAZOLE [Concomitant]
     Active Substance: FLUCONAZOLE
     Indication: Product used for unknown indication

REACTIONS (53)
  - Circulatory collapse [Fatal]
  - Multiple organ dysfunction syndrome [Fatal]
  - Fatigue [Fatal]
  - Renal failure [Fatal]
  - Upper gastrointestinal haemorrhage [Fatal]
  - Drug-induced liver injury [Fatal]
  - Hepatic failure [Fatal]
  - Chromaturia [Fatal]
  - Faeces pale [Fatal]
  - General physical health deterioration [Fatal]
  - Jaundice [Fatal]
  - Cholangitis [Fatal]
  - Hepatic enzyme increased [Fatal]
  - Weight decreased [Fatal]
  - Hypovolaemic shock [Fatal]
  - Coagulopathy [Fatal]
  - Disseminated intravascular coagulation [Fatal]
  - Hepatitis [Fatal]
  - Splenomegaly [Unknown]
  - Ocular icterus [Unknown]
  - Hepatic necrosis [Unknown]
  - Lymphadenopathy [Unknown]
  - Confusional state [Unknown]
  - Agranulocytosis [Unknown]
  - Neutropenia [Unknown]
  - Shock haemorrhagic [Unknown]
  - Cholestasis [Unknown]
  - Hepatic function abnormal [Unknown]
  - Drug interaction [Unknown]
  - Leukopenia [Unknown]
  - Cholangitis [Not Recovered/Not Resolved]
  - Hepatitis fulminant [Not Recovered/Not Resolved]
  - Candida infection [Unknown]
  - Sepsis [Unknown]
  - Bone marrow failure [Recovered/Resolved]
  - Pancytopenia [Unknown]
  - Hypoxia [Unknown]
  - Portal fibrosis [Unknown]
  - Hepatitis cholestatic [Unknown]
  - Acidosis [Unknown]
  - Hepatomegaly [Unknown]
  - Hyperferritinaemia [Unknown]
  - Pyrexia [Unknown]
  - Decreased appetite [Unknown]
  - Duodenal ulcer [Unknown]
  - Metabolic acidosis [Unknown]
  - Pneumonia bacterial [Unknown]
  - Nausea [Unknown]
  - Asthenia [Unknown]
  - Hepatotoxicity [Not Recovered/Not Resolved]
  - Abdominal pain [Unknown]
  - Thrombocytopenia [Unknown]
  - Abdominal pain upper [Unknown]

NARRATIVE: CASE EVENT DATE: 20150324
